FAERS Safety Report 6072885-7 (Version None)
Quarter: 2009Q1

REPORT INFORMATION
  Report Type: 
  Country: None (occurrence: None)
  Receive Date: 20090205
  Receipt Date: 20090123
  Transmission Date: 20090719
  Serious: Yes (Death, Hospitalization)
  Sender: FDA-Public Use
  Company Number: 004168

PATIENT
  Age: 55 Year
  Sex: Male

DRUGS (8)
  1. BUSULFEX [Suspect]
     Indication: STEM CELL TRANSPLANT
     Dosage: 30 ML, DAILY DOSE
     Route: 042
     Dates: start: 20070929, end: 20070930
  2. IDARUBICIN HYDROCHLORIDE (IDARUBICIN) [Suspect]
     Dosage: 180 MG, DAILY DOSE
  3. MITOXANTRONE HYDROCHLORIDE [Suspect]
     Dosage: 90 MG, DAILY DOSE
  4. DAUNORUBICIN HYDROCHLORIDE [Suspect]
     Dosage: 688 MG, DAILY DOSE
  5. ACLARUBICIN HYDROCHLORIDE (ACLARUBICIN HYDROCHLORIDE) [Suspect]
     Dosage: 275 MG, DAILY DOSE
  6. ANTITHYMOCYTE IMMUNOGLOBULIN (ANTITHIMOCYTE IMMUNOGLOBULIN) [Concomitant]
  7. MELPHALAN (MELPHALAN) [Concomitant]
  8. TACROLIMUS [Concomitant]

REACTIONS (12)
  - ACUTE GRAFT VERSUS HOST DISEASE [None]
  - ADENOVIRAL HAEMORRHAGIC CYSTITIS [None]
  - ASTHMA [None]
  - CARDIOTOXICITY [None]
  - CONSTIPATION [None]
  - DIABETES INSIPIDUS [None]
  - MYOCARDITIS [None]
  - NAUSEA [None]
  - STEM CELL TRANSPLANT [None]
  - STOMATITIS [None]
  - VOMITING [None]
  - WEIGHT INCREASED [None]
